FAERS Safety Report 17588002 (Version 2)
Quarter: 2020Q3

REPORT INFORMATION
  Report Type: Report from Study
  Country: None (occurrence: CA)
  Receive Date: 20200327
  Receipt Date: 20200902
  Transmission Date: 20201102
  Serious: Yes (Other)
  Sender: FDA-Public Use
  Company Number: CA-ABBVIE-20K-028-3337471-00

PATIENT
  Sex: Female

DRUGS (3)
  1. IMBRUVICA [Suspect]
     Active Substance: IBRUTINIB
     Route: 048
  2. IMBRUVICA [Suspect]
     Active Substance: IBRUTINIB
     Indication: CHRONIC LYMPHOCYTIC LEUKAEMIA
     Dosage: STRENGTH = 140 MG
     Route: 048
  3. IMBRUVICA [Suspect]
     Active Substance: IBRUTINIB
     Dosage: STRENGTH = 140 MG
     Route: 048
     Dates: start: 20190706

REACTIONS (7)
  - Joint swelling [Unknown]
  - Nausea [Unknown]
  - Eczema [Unknown]
  - Fatigue [Unknown]
  - Muscle spasms [Unknown]
  - Surgery [Unknown]
  - Headache [Unknown]
